FAERS Safety Report 15884090 (Version 1)
Quarter: 2019Q1

REPORT INFORMATION
  Report Type: Spontaneous
  Country: CA (occurrence: CA)
  Receive Date: 20190129
  Receipt Date: 20190129
  Transmission Date: 20190417
  Serious: Yes (Death)
  Sender: FDA-Public Use
  Company Number: CA-TEVA-2019-CA-1005391

PATIENT
  Age: 35 Year
  Sex: Female

DRUGS (8)
  1. BOOST [Concomitant]
     Active Substance: DIETARY SUPPLEMENT
  2. NARATRIPTAN HYDROCHLORIDE. [Concomitant]
     Active Substance: NARATRIPTAN HYDROCHLORIDE
  3. RIZATRIPTAN ODT [Suspect]
     Active Substance: RIZATRIPTAN BENZOATE
     Indication: MIGRAINE
     Route: 048
  4. AMITRIPTYLINE [Concomitant]
     Active Substance: AMITRIPTYLINE
  5. DULOXETINE. [Concomitant]
     Active Substance: DULOXETINE
  6. M-ESLON [Concomitant]
     Active Substance: MORPHINE SULFATE
  7. PANTOPRAZOLE [Concomitant]
     Active Substance: PANTOPRAZOLE
  8. QUETIAPINE XR [Concomitant]
     Active Substance: QUETIAPINE

REACTIONS (4)
  - Hypersensitivity [Fatal]
  - Skin exfoliation [Fatal]
  - Swelling face [Fatal]
  - Peripheral swelling [Fatal]
